FAERS Safety Report 18100621 (Version 1)
Quarter: 2020Q3

REPORT INFORMATION
  Report Type: Spontaneous
  Country: FR (occurrence: FR)
  Receive Date: 20200801
  Receipt Date: 20200801
  Transmission Date: 20201103
  Serious: Yes (Other)
  Sender: FDA-Public Use
  Company Number: FR-TEVA-2020-FR-1807182

PATIENT
  Age: 85 Year
  Sex: Female
  Weight: 85.1 kg

DRUGS (3)
  1. DIAZEPAM. [Suspect]
     Active Substance: DIAZEPAM
     Indication: ALCOHOL USE
     Dosage: 15 MG
     Route: 048
     Dates: start: 20200424
  2. LERCAN [Suspect]
     Active Substance: LERCANIDIPINE
     Indication: HYPERTENSION
     Dosage: 20 MG
     Route: 048
     Dates: start: 20200424, end: 20200429
  3. CEFTRIAXONE BASE [Suspect]
     Active Substance: CEFTRIAXONE
     Indication: SEPSIS
     Route: 042
     Dates: start: 20200424, end: 20200430

REACTIONS (2)
  - Liver disorder [Not Recovered/Not Resolved]
  - Hepatitis acute [Recovered/Resolved]

NARRATIVE: CASE EVENT DATE: 20200428
